FAERS Safety Report 8918611 (Version 2)
Quarter: 2014Q2

REPORT INFORMATION
  Report Type: Spontaneous
  Country: US (occurrence: US)
  Receive Date: 20121120
  Receipt Date: 20140610
  Transmission Date: 20141212
  Serious: Yes (Other)
  Sender: FDA-Public Use
  Company Number: US-ASTRAZENECA-2012SE19494

PATIENT
  Age: 94 Year
  Sex: Female
  Weight: 63.5 kg

DRUGS (10)
  1. NEXIUM [Suspect]
     Indication: DYSPEPSIA
     Route: 048
  2. LISINOPRIL [Suspect]
     Indication: BLOOD PRESSURE ABNORMAL
     Route: 048
  3. ZOLOFT [Concomitant]
     Dosage: 50MG NR
     Route: 048
  4. GEMFIBROZIL [Concomitant]
     Dosage: 600MG NR
     Route: 048
  5. VIT D [Concomitant]
     Route: 048
  6. CENTRUM SILVER VITAMINS [Concomitant]
     Dosage: NR NR
     Route: 048
  7. CALCIUM [Concomitant]
     Dosage: NR NR
     Route: 048
  8. CRANBERRY PILL [Concomitant]
     Indication: RENAL DISORDER
     Dosage: NR DAILY
     Route: 048
  9. EQUATE [Concomitant]
     Indication: CONSTIPATION
     Dosage: NR HS
     Route: 048
  10. TYLENOL [Concomitant]
     Indication: PAIN
     Dosage: NR PRN
     Route: 048

REACTIONS (9)
  - Scapula fracture [Unknown]
  - Fall [Unknown]
  - Osteoporosis [Not Recovered/Not Resolved]
  - Urinary incontinence [Not Recovered/Not Resolved]
  - Body height decreased [Not Recovered/Not Resolved]
  - Back pain [Not Recovered/Not Resolved]
  - Gastrooesophageal reflux disease [Unknown]
  - Dyspepsia [Not Recovered/Not Resolved]
  - Drug dose omission [Not Recovered/Not Resolved]
